FAERS Safety Report 10182115 (Version 1)
Quarter: 2014Q2

REPORT INFORMATION
  Report Type: Spontaneous
  Country: US (occurrence: US)
  Receive Date: 20140520
  Receipt Date: 20140520
  Transmission Date: 20141212
  Serious: Yes (Hospitalization)
  Sender: FDA-Public Use
  Company Number: US-AMGEN INC.-USASP2014036035

PATIENT
  Age: 81 Year
  Sex: Male

DRUGS (4)
  1. EPOGEN [Suspect]
     Indication: PRODUCT USED FOR UNKNOWN INDICATION
     Dosage: UNK
     Route: 065
  2. VELCADE [Concomitant]
     Indication: NEOPLASM MALIGNANT
     Dosage: 5 OR 6 IN HOSPITAL, 2 BEFORE
  3. TRAMADOL [Concomitant]
     Dosage: UNK
  4. TYLENOL                            /00020001/ [Concomitant]
     Dosage: UNK

REACTIONS (2)
  - Speech disorder [Unknown]
  - Sudden onset of sleep [Unknown]
